FAERS Safety Report 12065786 (Version 1)
Quarter: 2016Q1

REPORT INFORMATION
  Report Type: Spontaneous
  Country: US (occurrence: US)
  Receive Date: 20160211
  Receipt Date: 20160211
  Transmission Date: 20160526
  Serious: Yes (Other)
  Sender: FDA-Public Use
  Company Number: US-PFIZER INC-2016070125

PATIENT
  Age: 67 Year
  Sex: Male
  Weight: 73 kg

DRUGS (1)
  1. VIAGRA [Suspect]
     Active Substance: SILDENAFIL CITRATE
     Indication: ERECTILE DYSFUNCTION
     Dosage: ONE PILL EVERY 8-15 DAYS
     Route: 048
     Dates: start: 2001

REACTIONS (1)
  - Cataract [Unknown]
